FAERS Safety Report 8578125-9 (Version None)
Quarter: 2012Q3

REPORT INFORMATION
  Report Type: 
  Country: None (occurrence: None)
  Receive Date: 20120808
  Receipt Date: 20120730
  Transmission Date: 20120928
  Serious: Yes (Other)
  Sender: FDA-Public Use
  Company Number: US-BAYER-2012-064829

PATIENT
  Age: 34 Year
  Sex: Female
  Weight: 62.585 kg

DRUGS (1)
  1. MIRENA [Suspect]
     Indication: CONTRACEPTION
     Dosage: 20 MCG/24HR, CONT
     Route: 015
     Dates: start: 20120531, end: 20120626

REACTIONS (3)
  - ABDOMINAL PAIN LOWER [None]
  - DEVICE COMPONENT ISSUE [None]
  - DEVICE DISLOCATION [None]
